FAERS Safety Report 4493373-5 (Version None)
Quarter: 2004Q4

REPORT INFORMATION
  Report Type: 
  Country: None (occurrence: None)
  Receive Date: 20041104
  Receipt Date: 20041013
  Transmission Date: 20050328
  Serious: No
  Sender: FDA-Public Use
  Company Number: US-MERCK-0410USA02137

PATIENT
  Age: 52 Year
  Sex: Male

DRUGS (3)
  1. CRIXIVAN [Suspect]
     Route: 048
     Dates: start: 19980101
  2. [THERAPY UNSPECIFIED] [Concomitant]
     Indication: HIV TEST POSITIVE
     Route: 065
  3. DESIPRAMINE HYDROCHLORIDE [Concomitant]
     Indication: DEPRESSION
     Route: 065

REACTIONS (1)
  - PULMONARY FIBROSIS [None]
